FAERS Safety Report 24004725 (Version 2)
Quarter: 2025Q3

REPORT INFORMATION
  Report Type: Report from Study
  Country: EU (occurrence: EU)
  Receive Date: 20240624
  Receipt Date: 20250818
  Transmission Date: 20251020
  Serious: Yes (Other)
  Sender: MYLAN
  Company Number: EU-ROCHE-3579764

PATIENT

DRUGS (9)
  1. PREDNISONE [Interacting]
     Active Substance: PREDNISONE
     Indication: Product used for unknown indication
  2. PREDNISONE [Interacting]
     Active Substance: PREDNISONE
     Indication: Granulomatosis with polyangiitis
  3. AVACOPAN [Interacting]
     Active Substance: AVACOPAN
     Indication: Anti-neutrophil cytoplasmic antibody positive vasculitis
  4. AVACOPAN [Interacting]
     Active Substance: AVACOPAN
     Indication: Granulomatosis with polyangiitis
  5. RITUXIMAB [Interacting]
     Active Substance: RITUXIMAB
     Indication: Product used for unknown indication
  6. RITUXIMAB [Interacting]
     Active Substance: RITUXIMAB
     Indication: Granulomatosis with polyangiitis
  7. DENOSUMAB [Interacting]
     Active Substance: DENOSUMAB
     Indication: Product used for unknown indication
  8. RIFAMPIN [Interacting]
     Active Substance: RIFAMPIN
  9. ISONIAZID [Interacting]
     Active Substance: ISONIAZID
     Indication: Product used for unknown indication

REACTIONS (8)
  - JC polyomavirus test positive [Unknown]
  - Labelled drug-drug interaction issue [Unknown]
  - Granulomatosis with polyangiitis [Unknown]
  - Condition aggravated [Unknown]
  - Mononeuropathy multiplex [Unknown]
  - Interferon gamma release assay positive [Unknown]
  - Lower urinary tract symptoms [Unknown]
  - Product temperature excursion issue [Unknown]
